FAERS Safety Report 11529731 (Version 1)
Quarter: 2015Q3

REPORT INFORMATION
  Report Type: Spontaneous
  Country: US (occurrence: US)
  Receive Date: 20150921
  Receipt Date: 20150921
  Transmission Date: 20151125
  Serious: No
  Sender: FDA-Public Use
  Company Number: US-ELI_LILLY_AND_COMPANY-US201509002656

PATIENT

DRUGS (1)
  1. HUMALOG [Suspect]
     Active Substance: INSULIN LISPRO
     Indication: PRODUCT USED FOR UNKNOWN INDICATION
     Dosage: UNK
     Route: 065

REACTIONS (6)
  - Swelling face [Unknown]
  - Pharyngeal oedema [Unknown]
  - Pruritus [Unknown]
  - Oedema peripheral [Unknown]
  - Rash [Unknown]
  - Heart rate increased [Unknown]
